FAERS Safety Report 5706410-4 (Version None)
Quarter: 2008Q2

REPORT INFORMATION
  Report Type: 
  Country: None (occurrence: None)
  Receive Date: 20080415
  Receipt Date: 20080408
  Transmission Date: 20081010
  Serious: Yes (Hospitalization)
  Sender: FDA-Public Use
  Company Number: US-GENENTECH-259247

PATIENT

DRUGS (1)
  1. OMALIZUMAB [Suspect]
     Indication: ASTHMA
     Dosage: UNK, UNK
     Route: 064

REACTIONS (4)
  - CARDIAC SEPTAL DEFECT [None]
  - JAUNDICE [None]
  - PREMATURE BABY [None]
  - RESPIRATORY DISTRESS [None]
